FAERS Safety Report 13250167 (Version 2)
Quarter: 2017Q2

REPORT INFORMATION
  Report Type: Spontaneous
  Country: US (occurrence: US)
  Receive Date: 20170218
  Receipt Date: 20170517
  Transmission Date: 20170830
  Serious: Yes (Other)
  Sender: FDA-Public Use
  Company Number: US-TEVA-740623ACC

PATIENT
  Age: 27 Year
  Sex: Female
  Weight: 55.39 kg

DRUGS (1)
  1. PARAGARD T 380A [Suspect]
     Active Substance: COPPER
     Indication: CONTRACEPTION
     Dates: start: 20170120, end: 20170207

REACTIONS (4)
  - Dyspareunia [Unknown]
  - Device dislocation [Recovered/Resolved]
  - Device expulsion [Recovered/Resolved]
  - Vaginal haemorrhage [Unknown]

NARRATIVE: CASE EVENT DATE: 20170207
